FAERS Safety Report 25913606 (Version 1)
Quarter: 2025Q4

REPORT INFORMATION
  Report Type: Spontaneous
  Country: US (occurrence: US)
  Receive Date: 20251013
  Receipt Date: 20251013
  Transmission Date: 20260117
  Serious: No
  Sender: BAYER HEALTHCARE LLC
  Company Number: US-BAYER-2025A134624

PATIENT
  Age: 58 Year
  Sex: Male

DRUGS (2)
  1. ALEVE BACK AND MUSCLE PAIN [Suspect]
     Active Substance: NAPROXEN SODIUM
     Dosage: 4 DF, Q8HR
     Route: 048
     Dates: end: 20231009
  2. BRIVIACT [Concomitant]
     Active Substance: BRIVARACETAM

REACTIONS (1)
  - Drug ineffective [Not Recovered/Not Resolved]
